FAERS Safety Report 4963574-8 (Version None)
Quarter: 2006Q1

REPORT INFORMATION
  Report Type: 
  Country: None (occurrence: None)
  Receive Date: 20060201
  Receipt Date: 20051110
  Transmission Date: 20060701
  Serious: No
  Sender: FDA-Public Use
  Company Number: 2005PV004416

PATIENT
  Age: 58 Year
  Sex: Male
  Weight: 81.6475 kg

DRUGS (12)
  1. BYETTA [Suspect]
     Indication: DIABETES MELLITUS NON-INSULIN-DEPENDENT
     Dosage: 5 MCG;BID;SC
     Route: 058
     Dates: start: 20051024
  2. ZETIA [Concomitant]
  3. LIPITOR [Concomitant]
  4. FOLIC ACID [Concomitant]
  5. PLAVIX [Concomitant]
  6. PRINIVIL [Concomitant]
  7. PRECOSE [Concomitant]
  8. GLUCOPHAGE [Concomitant]
  9. PREVACID [Concomitant]
  10. ASPIRIN [Concomitant]
  11. MULTIVITAMIN [Concomitant]
  12. LANTUS [Concomitant]

REACTIONS (6)
  - ABDOMINAL PAIN UPPER [None]
  - COUGH [None]
  - HANGOVER [None]
  - NASOPHARYNGITIS [None]
  - NAUSEA [None]
  - RHINORRHOEA [None]
